FAERS Safety Report 5943496-6 (Version None)
Quarter: 2008Q4

REPORT INFORMATION
  Report Type: 
  Country: None (occurrence: None)
  Receive Date: 20081104
  Receipt Date: 20081024
  Transmission Date: 20090506
  Serious: No
  Sender: FDA-Public Use
  Company Number: 20085360

PATIENT
  Sex: Female

DRUGS (1)
  1. LIORESAL [Suspect]
     Indication: MUSCLE SPASTICITY
     Dosage: 13.2 MCG DAILY INTRATHECAL
     Route: 037

REACTIONS (11)
  - AGITATION [None]
  - COGNITIVE DISORDER [None]
  - CONFUSIONAL STATE [None]
  - DEVICE ELECTRICAL FINDING [None]
  - DEVICE MALFUNCTION [None]
  - DRUG INEFFECTIVE [None]
  - HEADACHE [None]
  - HYPERTONIA [None]
  - MEDICAL DEVICE COMPLICATION [None]
  - TREMOR [None]
  - WITHDRAWAL SYNDROME [None]
